FAERS Safety Report 9345110 (Version 1)
Quarter: 2013Q2

REPORT INFORMATION
  Report Type: Spontaneous
  Country: NL (occurrence: NL)
  Receive Date: 20130612
  Receipt Date: 20130612
  Transmission Date: 20140414
  Serious: Yes (Death)
  Sender: FDA-Public Use
  Company Number: NL-BAXTER-2013BAX016776

PATIENT
  Sex: Female

DRUGS (1)
  1. EXTRANEAL [Suspect]
     Indication: CARDIAC FAILURE
     Route: 033

REACTIONS (1)
  - Therapy cessation [Fatal]
